FAERS Safety Report 4516770-8 (Version None)
Quarter: 2004Q4

REPORT INFORMATION
  Report Type: 
  Country: None (occurrence: None)
  Receive Date: 20041029
  Receipt Date: 20040726
  Transmission Date: 20050328
  Serious: No
  Sender: FDA-Public Use
  Company Number: 2004-118971-NL

PATIENT
  Age: 30 Year
  Sex: Female

DRUGS (7)
  1. NUVARING [Suspect]
     Indication: CONTRACEPTION
     Dosage: DF DAILY VAGINAL
     Route: 067
     Dates: start: 20040625
  2. DIFLUCAN [Concomitant]
  3. NYSTATIN OINTMENT [Concomitant]
  4. UNIPHYL [Concomitant]
  5. PROVENTIL [Concomitant]
  6. COSTCO BRAND ALLERGY MED [Concomitant]
  7. MONISTAT [Concomitant]

REACTIONS (4)
  - DEVICE FAILURE [None]
  - MEDICAL DEVICE DISCOMFORT [None]
  - VAGINAL CONTRACEPTIVE DEVICE EXPELLED [None]
  - VAGINAL MYCOSIS [None]
